FAERS Safety Report 22929056 (Version 3)
Quarter: 2023Q4

REPORT INFORMATION
  Report Type: Spontaneous
  Country: JP (occurrence: JP)
  Receive Date: 20230911
  Receipt Date: 20231107
  Transmission Date: 20240110
  Serious: No
  Sender: FDA-Public Use
  Company Number: JP-PFIZER INC-PV202300144179

PATIENT
  Age: 9 Year
  Sex: Male

DRUGS (2)
  1. NGENLA [Suspect]
     Active Substance: SOMATROGON-GHLA
     Indication: Growth hormone deficiency
     Dosage: 20 MG
     Route: 058
     Dates: start: 20230614
  2. NGENLA [Suspect]
     Active Substance: SOMATROGON-GHLA
     Indication: Short stature

REACTIONS (2)
  - Wrong technique in device usage process [Unknown]
  - Injection site pain [Recovered/Resolved]

NARRATIVE: CASE EVENT DATE: 20230614
